FAERS Safety Report 13170631 (Version 1)
Quarter: 2017Q1

REPORT INFORMATION
  Report Type: Spontaneous
  Country: US (occurrence: US)
  Receive Date: 20170131
  Receipt Date: 20170131
  Transmission Date: 20170428
  Serious: No
  Sender: FDA-Public Use
  Company Number: US-ABBVIE-16K-163-1707599-00

PATIENT
  Sex: Female

DRUGS (1)
  1. HUMIRA [Suspect]
     Active Substance: ADALIMUMAB
     Indication: HIDRADENITIS
     Route: 058

REACTIONS (6)
  - Nasopharyngitis [Unknown]
  - Cough [Unknown]
  - Fatigue [Unknown]
  - Stress [Unknown]
  - Pain [Unknown]
  - Hidradenitis [Unknown]
